FAERS Safety Report 5890517-5 (Version None)
Quarter: 2008Q3

REPORT INFORMATION
  Report Type: 
  Country: None (occurrence: None)
  Receive Date: 20080918
  Receipt Date: 20080903
  Transmission Date: 20090109
  Serious: Yes (Hospitalization)
  Sender: FDA-Public Use
  Company Number: 2008BI020418

PATIENT
  Age: 67 Year
  Sex: Female

DRUGS (7)
  1. TYSABRI [Suspect]
     Indication: MULTIPLE SCLEROSIS
     Dosage: 300 MG; QM; IV
     Route: 042
     Dates: start: 20080804
  2. LAMICTAL [Concomitant]
  3. ATACAND [Concomitant]
  4. AMLODIPINE [Concomitant]
  5. CITALOPRAM [Concomitant]
  6. STEROIDS [Concomitant]
  7. NON STEROIDAL ANTIRHEUMATIC DRUGS [Concomitant]

REACTIONS (4)
  - ANAEMIA [None]
  - BARRETT'S OESOPHAGUS [None]
  - HAEMORRHAGE [None]
  - HIATUS HERNIA [None]
